FAERS Safety Report 19767401 (Version 1)
Quarter: 2021Q3

REPORT INFORMATION
  Report Type: Spontaneous
  Country: US (occurrence: US)
  Receive Date: 20210830
  Receipt Date: 20210830
  Transmission Date: 20211014
  Serious: Yes (Disabling)
  Sender: FDA-Public Use
  Company Number: None

PATIENT
  Age: 37 Year
  Sex: Male
  Weight: 112.5 kg

DRUGS (1)
  1. MOXIFLOXACIN. [Suspect]
     Active Substance: MOXIFLOXACIN
     Indication: EAR INFECTION
     Route: 048
     Dates: start: 20210313, end: 20210314

REACTIONS (2)
  - Sensory disturbance [None]
  - Paraesthesia [None]

NARRATIVE: CASE EVENT DATE: 20210315
